FAERS Safety Report 10215714 (Version 1)
Quarter: 2014Q2

REPORT INFORMATION
  Report Type: Spontaneous
  Country: SE (occurrence: None)
  Receive Date: 20140520
  Receipt Date: 20140520
  Transmission Date: 20141212
  Serious: Yes (Hospitalization)
  Sender: FDA-Public Use
  Company Number: WIL-015-14-SE

PATIENT
  Age: 64 Year
  Sex: Female

DRUGS (4)
  1. WILATE [Suspect]
     Indication: VON WILLEBRAND^S DISEASE
     Dosage: 2000 IU (3X 1/WEEKS), INTRAVENOUS (NOT OTHEWISE SPECIFIED)?
     Route: 042
     Dates: start: 20140301, end: 20140301
  2. EZOMEPARZOL [Concomitant]
  3. TRANEXAMIC ACID [Concomitant]
  4. ATORVASTATIN [Concomitant]

REACTIONS (10)
  - Gastrointestinal haemorrhage [None]
  - Tachycardia [None]
  - Nausea [None]
  - Fatigue [None]
  - Pyrexia [None]
  - Drug ineffective [None]
  - Haemoglobin decreased [None]
  - Platelet count decreased [None]
  - Blood sodium decreased [None]
  - Blood potassium decreased [None]
